FAERS Safety Report 9758468 (Version 1)
Quarter: 2013Q4

REPORT INFORMATION
  Report Type: Spontaneous
  Country: US (occurrence: None)
  Receive Date: 20131216
  Receipt Date: 20131216
  Transmission Date: 20140711
  Serious: No
  Sender: FDA-Public Use
  Company Number: CABO-13002507

PATIENT
  Age: 55 Year
  Sex: Female
  Weight: 64 kg

DRUGS (1)
  1. COMETRIQ (CABOZANTINIB) CAPSULE [Suspect]
     Indication: THYROID CANCER
     Dosage: 140 MG, QD, ORAL?140 MG, QD, ORAL

REACTIONS (11)
  - Lipids increased [None]
  - Hypertension [None]
  - Hepatic enzyme increased [None]
  - Blood thyroid stimulating hormone increased [None]
  - Stomatitis [None]
  - Ageusia [None]
  - Decreased appetite [None]
  - Abdominal pain [None]
  - Constipation [None]
  - Fatigue [None]
  - Dysgeusia [None]
